FAERS Safety Report 11486631 (Version 3)
Quarter: 2015Q3

REPORT INFORMATION
  Report Type: Report from Study
  Country: US (occurrence: US)
  Receive Date: 20150909
  Receipt Date: 20150923
  Transmission Date: 20151125
  Serious: Yes (Hospitalization)
  Sender: FDA-Public Use
  Company Number: US-SIGMA-TAU US-2015STPI000549

PATIENT
  Age: 27 Year
  Sex: Male
  Weight: 112.7 kg

DRUGS (14)
  1. VINCRISTINE SULFATE. [Suspect]
     Active Substance: VINCRISTINE SULFATE
     Indication: ACUTE LYMPHOCYTIC LEUKAEMIA
     Dosage: 3.16 MG, OTHER
     Route: 042
     Dates: start: 20150729, end: 20150819
  2. RITUXIMAB [Suspect]
     Active Substance: RITUXIMAB
     Indication: ACUTE LYMPHOCYTIC LEUKAEMIA
     Dosage: 375 MG/M2, UNK
     Route: 042
     Dates: start: 20150729, end: 20150812
  3. ACYCLOVIR. [Concomitant]
     Active Substance: ACYCLOVIR
     Indication: PRODUCT USED FOR UNKNOWN INDICATION
     Dosage: 400 MG, BID
     Route: 048
  4. ONCASPAR [Suspect]
     Active Substance: PEGASPARGASE
     Indication: ACUTE LYMPHOCYTIC LEUKAEMIA
     Dosage: 3750 IU, X1
     Route: 042
     Dates: start: 20150813, end: 20150813
  5. DEPOCYT [Suspect]
     Active Substance: CYTARABINE
     Indication: PROPHYLAXIS
     Dosage: 50 MG, X2
     Route: 037
     Dates: start: 20150729, end: 20150812
  6. ALBUTEROL SULFATE. [Concomitant]
     Active Substance: ALBUTEROL SULFATE
     Indication: PRODUCT USED FOR UNKNOWN INDICATION
     Dosage: 2 DF, Q12H
  7. FLUCONAZOLE. [Concomitant]
     Active Substance: FLUCONAZOLE
     Indication: PROPHYLAXIS
     Route: 048
  8. PREDNISONE. [Suspect]
     Active Substance: PREDNISONE
     Indication: ACUTE LYMPHOCYTIC LEUKAEMIA
     Dosage: 82 MG, QD
     Route: 048
     Dates: start: 20150729
  9. DAUNORUBICIN HCL [Suspect]
     Active Substance: DAUNORUBICIN HYDROCHLORIDE
     Indication: ACUTE LYMPHOCYTIC LEUKAEMIA
     Dosage: 135 MG, QD
     Route: 042
     Dates: start: 20150729, end: 20150731
  10. ALBUTEROL SULFATE. [Concomitant]
     Active Substance: ALBUTEROL SULFATE
     Indication: PRODUCT USED FOR UNKNOWN INDICATION
  11. BACTRIM DS [Concomitant]
     Active Substance: SULFAMETHOXAZOLE\TRIMETHOPRIM
     Indication: PRODUCT USED FOR UNKNOWN INDICATION
     Dosage: 1 DF, BIW
     Route: 048
  12. CYCLOPHOSPHAMIDE. [Suspect]
     Active Substance: CYCLOPHOSPHAMIDE
     Indication: ACUTE LYMPHOCYTIC LEUKAEMIA
     Dosage: 750 M2, X2
     Route: 042
     Dates: start: 20150729, end: 20150812
  13. PREDNISONE. [Concomitant]
     Active Substance: PREDNISONE
     Indication: PRODUCT USED FOR UNKNOWN INDICATION
     Dosage: 135 MG, QD
     Route: 048
  14. LEVOFLOXACIN. [Concomitant]
     Active Substance: LEVOFLOXACIN
     Indication: PROPHYLAXIS
     Dosage: 500 MG, UNK
     Route: 048

REACTIONS (6)
  - Vomiting [Recovered/Resolved]
  - Alanine aminotransferase increased [Recovering/Resolving]
  - Hepatotoxicity [Unknown]
  - Blood fibrinogen decreased [Recovering/Resolving]
  - Aspartate aminotransferase increased [Recovering/Resolving]
  - Abdominal pain [Recovered/Resolved]

NARRATIVE: CASE EVENT DATE: 20150824
